FAERS Safety Report 9247319 (Version 1)
Quarter: 2013Q2

REPORT INFORMATION
  Report Type: Spontaneous
  Country: HU (occurrence: HU)
  Receive Date: 20130423
  Receipt Date: 20130423
  Transmission Date: 20140414
  Serious: Yes (Hospitalization)
  Sender: FDA-Public Use
  Company Number: HU-JNJFOC-20130408792

PATIENT
  Age: 54 Year
  Sex: Female

DRUGS (2)
  1. REMICADE [Suspect]
     Indication: PSORIATIC ARTHROPATHY
     Dosage: 5MG/BW/
     Route: 042
  2. MEDAZEPAM [Concomitant]
     Route: 048

REACTIONS (3)
  - Gastrointestinal carcinoma [Unknown]
  - Ascites [Unknown]
  - Metastases to peritoneum [Unknown]
